FAERS Safety Report 9468624 (Version 5)
Quarter: 2014Q2

REPORT INFORMATION
  Report Type: Spontaneous
  Country: US (occurrence: US)
  Receive Date: 20130821
  Receipt Date: 20140519
  Transmission Date: 20141212
  Serious: Yes (Hospitalization, Disabling, Other)
  Sender: FDA-Public Use
  Company Number: US-009507513-1308USA008357

PATIENT
  Sex: Female
  Weight: 72.56 kg

DRUGS (1)
  1. NUVARING [Suspect]
     Indication: CONTRACEPTION
     Dosage: UNK
     Route: 067
     Dates: start: 201102, end: 20110923

REACTIONS (20)
  - Pneumonia [Unknown]
  - Pulmonary embolism [Unknown]
  - Deep vein thrombosis [Unknown]
  - Anaemia [Unknown]
  - Blood cholesterol abnormal [Unknown]
  - Varicose vein [Unknown]
  - Anxiety [Unknown]
  - Ovarian cyst [Unknown]
  - Maternal exposure before pregnancy [Unknown]
  - Migraine [Unknown]
  - Depression [Unknown]
  - Spinal osteoarthritis [Unknown]
  - Vena cava embolism [Unknown]
  - Sleep disorder [Unknown]
  - Contusion [Unknown]
  - Contusion [Unknown]
  - Chest pain [Unknown]
  - Vena cava filter insertion [Unknown]
  - Antiphospholipid antibodies [Unknown]
  - Headache [Unknown]
